FAERS Safety Report 5108025-8 (Version None)
Quarter: 2006Q3

REPORT INFORMATION
  Report Type: 
  Country: None (occurrence: None)
  Receive Date: 20060914
  Receipt Date: 20060904
  Transmission Date: 20061208
  Serious: Yes (Hospitalization)
  Sender: FDA-Public Use
  Company Number: 2006106231

PATIENT
  Age: 61 Year
  Sex: Female

DRUGS (2)
  1. NORVASC [Suspect]
     Indication: DRUG USE FOR UNKNOWN INDICATION
     Dosage: ORAL
     Route: 048
     Dates: start: 20060305, end: 20060305
  2. ASPIRIN [Suspect]
     Indication: DRUG USE FOR UNKNOWN INDICATION
     Dosage: 2500 MG (500 MG), ORAL
     Route: 048
     Dates: start: 20060305, end: 20060305

REACTIONS (2)
  - BLOOD ALCOHOL INCREASED [None]
  - MULTIPLE DRUG OVERDOSE INTENTIONAL [None]
